FAERS Safety Report 17798670 (Version 1)
Quarter: 2020Q2

REPORT INFORMATION
  Report Type: Spontaneous
  Country: US (occurrence: US)
  Receive Date: 20200515
  Receipt Date: 20200515
  Transmission Date: 20200714
  Serious: Yes (Hospitalization)
  Sender: FDA-Public Use
  Company Number: None

PATIENT
  Sex: Female

DRUGS (7)
  1. KISQALI [Suspect]
     Active Substance: RIBOCICLIB
     Indication: BREAST CANCER FEMALE
     Route: 048
     Dates: start: 20200131
  2. METFORMIN [Concomitant]
     Active Substance: METFORMIN HYDROCHLORIDE
  3. LETROZOLE. [Concomitant]
     Active Substance: LETROZOLE
  4. GLIMPERIDE [Concomitant]
     Active Substance: GLIMEPIRIDE
  5. DILTIAZEM. [Concomitant]
     Active Substance: DILTIAZEM
  6. VOMETA [Suspect]
     Active Substance: DOMPERIDONE
  7. LISINOPRIL. [Concomitant]
     Active Substance: LISINOPRIL

REACTIONS (5)
  - Peripheral swelling [None]
  - Joint swelling [None]
  - Chills [None]
  - Pyrexia [None]
  - Diarrhoea [None]
